FAERS Safety Report 24631199 (Version 1)
Quarter: 2024Q4

REPORT INFORMATION
  Report Type: Spontaneous
  Country: US (occurrence: None)
  Receive Date: 20241117
  Receipt Date: 20241117
  Transmission Date: 20250115
  Serious: Yes (Death)
  Sender: Public
  Company Number: None

PATIENT
  Age: 15 Year
  Sex: Male
  Weight: 73.8 kg

DRUGS (3)
  1. MONTELUKAST SODIUM [Suspect]
     Active Substance: MONTELUKAST SODIUM
     Indication: Multiple allergies
     Dosage: 1 TABLET AT BEDTIME ORAL
     Route: 048
  2. MONTELUKAST [Concomitant]
  3. AZELASTINE [Concomitant]
     Active Substance: AZELASTINE

REACTIONS (2)
  - Headache [None]
  - Completed suicide [None]

NARRATIVE: CASE EVENT DATE: 20241029
